FAERS Safety Report 8339053-7 (Version None)
Quarter: 2012Q2

REPORT INFORMATION
  Report Type: 
  Country: None (occurrence: None)
  Receive Date: 20120502
  Receipt Date: 20120426
  Transmission Date: 20120825
  Serious: Yes (Death, Hospitalization, Other)
  Sender: FDA-Public Use
  Company Number: DAV-AE-MTX-12-38

PATIENT
  Age: 67 Year
  Sex: Female

DRUGS (4)
  1. PROCARBAZINE HYDROCHLORIDE [Concomitant]
  2. RITUXIMAB [Concomitant]
  3. METHOTREXATE [Suspect]
     Indication: CENTRAL NERVOUS SYSTEM LYMPHOMA
  4. VINCRISTINE [Concomitant]

REACTIONS (1)
  - ENCEPHALITIS HERPES [None]
